FAERS Safety Report 19719660 (Version 1)
Quarter: 2021Q3

REPORT INFORMATION
  Report Type: Spontaneous
  Country: US (occurrence: US)
  Receive Date: 20210818
  Receipt Date: 20210818
  Transmission Date: 20211014
  Serious: Yes (Other)
  Sender: FDA-Public Use
  Company Number: US-PURDUE-USA-2020-0273935

PATIENT

DRUGS (1)
  1. OXYCODONE HYDROCHLORIDE (SIMILAR TO NDA 22?272) [Suspect]
     Active Substance: OXYCODONE HYDROCHLORIDE
     Indication: PRODUCT USED FOR UNKNOWN INDICATION
     Dosage: UNKNOWN
     Route: 065

REACTIONS (64)
  - Loss of consciousness [Unknown]
  - Chest discomfort [Unknown]
  - Dizziness [Unknown]
  - Dry mouth [Unknown]
  - Thirst [Unknown]
  - Abnormal faeces [Unknown]
  - Dependence [Unknown]
  - Urinary incontinence [Unknown]
  - Feeling hot [Unknown]
  - Tremor [Unknown]
  - Decreased appetite [Unknown]
  - Pallor [Unknown]
  - Yellow skin [Unknown]
  - Urine output decreased [Unknown]
  - Rash [Unknown]
  - Swelling face [Unknown]
  - Chromaturia [Unknown]
  - Pulse abnormal [Unknown]
  - Irregular breathing [Unknown]
  - Breath odour [Unknown]
  - Altered state of consciousness [Unknown]
  - Chills [Unknown]
  - Confusional state [Unknown]
  - Dizziness postural [Unknown]
  - Muscle twitching [Unknown]
  - Dysuria [Unknown]
  - Cough [Unknown]
  - Urine output increased [Unknown]
  - Muscle spasms [Unknown]
  - Miosis [Unknown]
  - Hypotonia [Unknown]
  - Paraesthesia [Unknown]
  - Chest pain [Unknown]
  - Weight increased [Unknown]
  - Lid sulcus deepened [Unknown]
  - Weight abnormal [Unknown]
  - Retching [Unknown]
  - Choking [Unknown]
  - Cold sweat [Unknown]
  - Dyspnoea [Unknown]
  - Peripheral swelling [Unknown]
  - Dysphagia [Unknown]
  - Heart rate increased [Unknown]
  - Abdominal pain upper [Unknown]
  - Hyperhidrosis [Unknown]
  - Asthenia [Unknown]
  - Vision blurred [Unknown]
  - Diarrhoea [Unknown]
  - Syncope [Unknown]
  - Blood urine present [Unknown]
  - Pollakiuria [Unknown]
  - Flushing [Unknown]
  - Nausea [Unknown]
  - Tachypnoea [Unknown]
  - Constipation [Unknown]
  - Vomiting [Unknown]
  - Decreased immune responsiveness [Unknown]
  - Somnolence [Unknown]
  - Emotional distress [Unknown]
  - Headache [Unknown]
  - Pyrexia [Unknown]
  - Heart rate irregular [Unknown]
  - Lymph gland infection [Unknown]
  - Skin wrinkling [Unknown]
